FAERS Safety Report 24702408 (Version 2)
Quarter: 2024Q4

REPORT INFORMATION
  Report Type: Spontaneous
  Country: BR (occurrence: BR)
  Receive Date: 20241205
  Receipt Date: 20241219
  Transmission Date: 20250115
  Serious: Yes (Other)
  Sender: MERCK
  Company Number: BR-009507513-2412BRA000886

PATIENT
  Sex: Male

DRUGS (1)
  1. WELIREG [Suspect]
     Active Substance: BELZUTIFAN
     Indication: Renal cell carcinoma
     Dosage: UNK
     Route: 048

REACTIONS (1)
  - Malignant neoplasm progression [Unknown]
